FAERS Safety Report 4999895-2 (Version None)
Quarter: 2006Q2

REPORT INFORMATION
  Report Type: 
  Country: None (occurrence: None)
  Receive Date: 20060509
  Receipt Date: 20060509
  Transmission Date: 20061013
  Serious: Yes (Death)
  Sender: FDA-Public Use
  Company Number: None

PATIENT
  Sex: Male
  Weight: 8 kg

DRUGS (9)
  1. VIRAMUNE [Suspect]
     Indication: HIV INFECTION
     Dosage: 320 MG/M2   DAILY   PO
     Route: 048
     Dates: start: 20060412, end: 20060419
  2. STAVUDINE [Concomitant]
  3. LAMIVUDINE [Concomitant]
  4. RITONAVIR [Concomitant]
  5. LOPINAVIR [Concomitant]
  6. COTRIMOXAOZLE [Concomitant]
  7. AMOXICILLIN [Concomitant]
  8. ACETAMINOPHEN [Concomitant]
  9. ORAL REHYDRATION SOLUTION AND SALINE NOSE DROPS [Concomitant]

REACTIONS (11)
  - ABNORMAL FAECES [None]
  - CONTUSION [None]
  - DRUG EXPOSURE DURING PREGNANCY [None]
  - FAECES DISCOLOURED [None]
  - GASTROENTERITIS [None]
  - INCORRECT DOSE ADMINISTERED [None]
  - MALAISE [None]
  - PYREXIA [None]
  - RASH [None]
  - RESPIRATORY TRACT INFECTION [None]
  - VOMITING [None]
